FAERS Safety Report 10354603 (Version 1)
Quarter: 2014Q3

REPORT INFORMATION
  Report Type: Spontaneous
  Country: IN (occurrence: IN)
  Receive Date: 20140731
  Receipt Date: 20140731
  Transmission Date: 20150326
  Serious: Yes (Other)
  Sender: FDA-Public Use
  Company Number: IN-ASTRAZENECA-2014SE53509

PATIENT
  Age: 60 Year
  Sex: Male

DRUGS (4)
  1. LOW-MOLECULAR WEIGHT HEPARIN [Concomitant]
  2. BUPIVACAINE [Suspect]
     Active Substance: BUPIVACAINE
     Indication: EPIDURAL ANAESTHESIA
     Route: 008
  3. SPINAL ANAESTHETIC [Concomitant]
     Indication: SPINAL ANAESTHESIA
     Route: 037
  4. FENTANYL. [Suspect]
     Active Substance: FENTANYL
     Indication: POSTOPERATIVE ANALGESIA
     Route: 008

REACTIONS (3)
  - Paraplegia [Recovered/Resolved]
  - Sensory loss [Recovered/Resolved]
  - Abdominal distension [Recovered/Resolved]
